FAERS Safety Report 24908398 (Version 1)
Quarter: 2025Q1

REPORT INFORMATION
  Report Type: Spontaneous
  Country: US (occurrence: US)
  Receive Date: 20250131
  Receipt Date: 20250131
  Transmission Date: 20250409
  Serious: No
  Sender: MERCK
  Company Number: US-009507513-2501USA006341

PATIENT
  Age: 60 Year
  Sex: Female

DRUGS (2)
  1. STROMECTOL [Suspect]
     Active Substance: IVERMECTIN
     Indication: Lung carcinoma cell type unspecified stage IV
     Route: 048
  2. FENBENDAZOLE [Concomitant]
     Active Substance: FENBENDAZOLE
     Indication: Lung carcinoma cell type unspecified stage IV

REACTIONS (1)
  - Drug effective for unapproved indication [Unknown]
